FAERS Safety Report 12399989 (Version 1)
Quarter: 2016Q2

REPORT INFORMATION
  Report Type: Report from Study
  Country: BE (occurrence: BE)
  Receive Date: 20160524
  Receipt Date: 20160524
  Transmission Date: 20160815
  Serious: Yes (Hospitalization)
  Sender: FDA-Public Use
  Company Number: BE-ABBVIE-16P-013-1632350-00

PATIENT
  Age: 52 Year
  Sex: Male

DRUGS (9)
  1. DUODOPA [Suspect]
     Active Substance: CARBIDOPA\LEVODOPA
     Dosage: AM= 4 ML; CD= 2.4 ML/H DURING 16 HRS; ED= 1.5 ML
     Route: 050
     Dates: start: 20160330, end: 20160512
  2. DUODOPA [Suspect]
     Active Substance: CARBIDOPA\LEVODOPA
     Dosage: AM= 4 ML; CD= 2.4 ML/H DURING 16 HRS; ED= 1 ML
     Route: 050
     Dates: start: 20160518, end: 20160519
  3. DUODOPA [Suspect]
     Active Substance: CARBIDOPA\LEVODOPA
     Indication: PARKINSON^S DISEASE
     Dosage: AM=5ML; CD= 2.3 ML/H DURING 16 HRS; ED= 1.5 ML
     Route: 050
     Dates: start: 20130121, end: 20130601
  4. STALEVO [Concomitant]
     Active Substance: CARBIDOPA\ENTACAPONE\LEVODOPA
     Indication: PARKINSON^S DISEASE
     Dosage: FORM STRENGTH: 150MG/37.5MG/200MG
     Route: 048
  5. DUODOPA [Suspect]
     Active Substance: CARBIDOPA\LEVODOPA
     Dosage: DOSES CONTINUOUSLY MONITORED AND ADAPTED
     Route: 050
     Dates: start: 20130601, end: 20160330
  6. DUODOPA [Suspect]
     Active Substance: CARBIDOPA\LEVODOPA
     Dosage: AM= 4 ML; CD= 2.6 ML/H FOR 16 HRS; ED= 0.8 ML
     Route: 050
     Dates: start: 20160519
  7. DUODOPA [Suspect]
     Active Substance: CARBIDOPA\LEVODOPA
     Dosage: AM= 4 ML; CD= 2.4 ML/H DURING 16 HRS; ED= 1.5 ML
     Route: 050
     Dates: start: 20160512, end: 20160517
  8. DUODOPA [Suspect]
     Active Substance: CARBIDOPA\LEVODOPA
     Dosage: AM= 4 ML; CD= 2.4 ML/H DURING 16 HRS; ED= 1.5 ML
     Route: 050
     Dates: start: 20160517, end: 20160518
  9. STALEVO [Concomitant]
     Active Substance: CARBIDOPA\ENTACAPONE\LEVODOPA
     Dosage: FORM STRENGTH: 150MG/37.5MG/200MG; 4/DAY AS RESCUE MEDICATION
     Route: 048

REACTIONS (6)
  - Device occlusion [Recovered/Resolved]
  - Freezing phenomenon [Unknown]
  - Incorrect route of drug administration [Recovered/Resolved]
  - Incorrect route of drug administration [Recovered/Resolved]
  - Device alarm issue [Recovered/Resolved]
  - Therapeutic response increased [Unknown]

NARRATIVE: CASE EVENT DATE: 20160512
